FAERS Safety Report 15380385 (Version 8)
Quarter: 2020Q4

REPORT INFORMATION
  Report Type: Spontaneous
  Country: US (occurrence: US)
  Receive Date: 20180913
  Receipt Date: 20201214
  Transmission Date: 20210113
  Serious: No
  Sender: FDA-Public Use
  Company Number: US-SA-2018SA255984

PATIENT

DRUGS (4)
  1. LANTUS SOLOSTAR [Suspect]
     Active Substance: INSULIN GLARGINE
     Dosage: 14 IU, QD
     Route: 065
  2. LANTUS SOLOSTAR [Suspect]
     Active Substance: INSULIN GLARGINE
     Dosage: 2 IU, UNK
     Route: 065
  3. LANTUS SOLOSTAR [Suspect]
     Active Substance: INSULIN GLARGINE
     Dosage: 35 IU, QD
     Route: 065
  4. LANTUS SOLOSTAR [Suspect]
     Active Substance: INSULIN GLARGINE
     Indication: TYPE 2 DIABETES MELLITUS
     Dosage: 45 IU, QD
     Route: 065

REACTIONS (12)
  - Vertigo [Unknown]
  - Somnolence [Unknown]
  - Vision blurred [Unknown]
  - Headache [Unknown]
  - Pruritus [Unknown]
  - Taste disorder [Unknown]
  - Dizziness [Unknown]
  - Rash [Unknown]
  - Blood glucose increased [Unknown]
  - Device issue [Unknown]
  - Feeling abnormal [Unknown]
  - Intentional product misuse [Unknown]
